FAERS Safety Report 13403802 (Version 2)
Quarter: 2017Q2

REPORT INFORMATION
  Report Type: Report from Study
  Country: AU (occurrence: AU)
  Receive Date: 20170405
  Receipt Date: 20170515
  Transmission Date: 20170830
  Serious: Yes (Other)
  Sender: FDA-Public Use
  Company Number: PHHY2017AU050617

PATIENT
  Age: 50 Year
  Sex: Male

DRUGS (3)
  1. VITAMIN B12 [Concomitant]
     Active Substance: CYANOCOBALAMIN
     Indication: PRODUCT USED FOR UNKNOWN INDICATION
     Dosage: UNK, QD
     Route: 065
  2. GILENYA [Suspect]
     Active Substance: FINGOLIMOD HYDROCHLORIDE
     Indication: RELAPSING-REMITTING MULTIPLE SCLEROSIS
     Dosage: 0.5 MG, QD
     Route: 065
     Dates: start: 20160318, end: 20170403
  3. VITAMIN D [Concomitant]
     Active Substance: CHOLECALCIFEROL
     Indication: PRODUCT USED FOR UNKNOWN INDICATION
     Dosage: UNK, QD
     Route: 065

REACTIONS (14)
  - Myelodysplastic syndrome [Unknown]
  - Alanine aminotransferase increased [Unknown]
  - Concomitant disease aggravated [Not Recovered/Not Resolved]
  - Lymphocyte count decreased [Unknown]
  - Aspartate aminotransferase increased [Unknown]
  - Epstein-Barr virus antibody positive [Unknown]
  - Neutropenia [Not Recovered/Not Resolved]
  - Blood alkaline phosphatase decreased [Unknown]
  - Central nervous system lesion [Unknown]
  - Granulocytopenia [Unknown]
  - Blood iron decreased [Unknown]
  - Cytomegalovirus test positive [Unknown]
  - Marrow hyperplasia [Unknown]
  - Leukopenia [Not Recovered/Not Resolved]

NARRATIVE: CASE EVENT DATE: 20160711
